FAERS Safety Report 13795976 (Version 1)
Quarter: 2017Q3

REPORT INFORMATION
  Report Type: Spontaneous
  Country: FR (occurrence: FR)
  Receive Date: 20170726
  Receipt Date: 20170726
  Transmission Date: 20171127
  Serious: Yes (Hospitalization)
  Sender: FDA-Public Use
  Company Number: PHHY2017FR108148

PATIENT
  Age: 83 Year
  Sex: Male

DRUGS (16)
  1. ALFUZOSINE [Concomitant]
     Active Substance: ALFUZOSIN HYDROCHLORIDE
     Indication: PROSTATIC DISORDER
     Dosage: 1 DF, TID (EVERY 3 IN EVENING)
     Route: 065
  2. KARDEGIC [Concomitant]
     Active Substance: ASPIRIN LYSINE
     Indication: BLOOD DISORDER
     Dosage: 1 DF, QD
     Route: 065
  3. REVOLADE [Suspect]
     Active Substance: ELTROMBOPAG
     Indication: THROMBOCYTOPENIA
     Dosage: 50 MG, QD (1 DF A DAY)
     Route: 065
     Dates: start: 20161122, end: 201612
  4. ESOMEPRAZOLE [Concomitant]
     Active Substance: ESOMEPRAZOLE
     Indication: CEREBROVASCULAR ACCIDENT
     Dosage: 1 DF, QD
     Route: 065
  5. CARDENSIEL [Concomitant]
     Active Substance: BISOPROLOL FUMARATE
     Indication: CARDIAC DISORDER
     Dosage: 1 DF, QD
     Route: 065
  6. LAROXYL [Concomitant]
     Active Substance: AMITRIPTYLINE
     Indication: NERVOUS SYSTEM DISORDER
     Dosage: 1 DF, QD
     Route: 065
     Dates: end: 20170122
  7. REVOLADE [Suspect]
     Active Substance: ELTROMBOPAG
     Dosage: 25 MG, QD (1 DF A DAY)
     Route: 065
     Dates: start: 201702
  8. GAVISCON [Concomitant]
     Active Substance: ALUMINUM HYDROXIDE\MAGNESIUM CARBONATE
     Indication: GASTRIC DISORDER
     Dosage: 1 DF, QD
     Route: 065
  9. LYRICA [Concomitant]
     Active Substance: PREGABALIN
     Indication: PARAESTHESIA
     Dosage: 50 G, QD
     Route: 065
  10. REVOLADE [Suspect]
     Active Substance: ELTROMBOPAG
     Dosage: 25 MG, QD (1/2 DF A DAY)
     Route: 065
     Dates: start: 20170125, end: 201702
  11. PRADAXA [Concomitant]
     Active Substance: DABIGATRAN ETEXILATE MESYLATE
     Indication: CEREBROVASCULAR ACCIDENT
     Dosage: 1 DF, QD
     Route: 065
  12. SIMVASTATINE [Concomitant]
     Active Substance: SIMVASTATIN
     Indication: CEREBROVASCULAR ACCIDENT
     Dosage: 1 DF, QD
     Route: 065
  13. REVOLADE [Suspect]
     Active Substance: ELTROMBOPAG
     Dosage: 25 MG, QD (1/2 DF A DAY)
     Route: 065
     Dates: start: 201702
  14. CLARITINE [Concomitant]
     Active Substance: LORATADINE
     Indication: PRODUCT USED FOR UNKNOWN INDICATION
     Dosage: 1 DF, QD
     Route: 065
  15. ONBREZ [Concomitant]
     Active Substance: INDACATEROL
     Indication: FIBROSIS
     Dosage: 1 DF, QD
     Route: 065
  16. LYRICA [Concomitant]
     Active Substance: PREGABALIN
     Dosage: 25 G, QD
     Route: 065

REACTIONS (6)
  - Muscular weakness [Recovered/Resolved]
  - Anosmia [Not Recovered/Not Resolved]
  - Gait disturbance [Recovered/Resolved]
  - Platelet count decreased [Unknown]
  - Ageusia [Not Recovered/Not Resolved]
  - Wrong technique in product usage process [Unknown]

NARRATIVE: CASE EVENT DATE: 20161206
